FAERS Safety Report 7462130-X (Version None)
Quarter: 2011Q2

REPORT INFORMATION
  Report Type: 
  Country: None (occurrence: None)
  Receive Date: 20110427
  Receipt Date: 20110418
  Transmission Date: 20111010
  Serious: Yes (Death)
  Sender: FDA-Public Use
  Company Number: CRC-11-106

PATIENT
  Age: 76 Year
  Sex: Male

DRUGS (9)
  1. DIGOXIN [Suspect]
     Dosage: ONE TABLET DAILY, ORALLY
     Route: 048
  2. TIZANIDINE HCL [Concomitant]
  3. AMBIEN [Concomitant]
  4. AMLODIPINE BESYLATE [Concomitant]
  5. ASPIRIN [Concomitant]
  6. LISINOPRIL [Concomitant]
  7. PREDNISONE TAB [Concomitant]
  8. OMEPRAZOLE [Concomitant]
  9. ATORVASTATIN [Concomitant]

REACTIONS (4)
  - CARDIAC FAILURE [None]
  - VENTRICULAR TACHYCARDIA [None]
  - VENTRICULAR FIBRILLATION [None]
  - CARDIAC ARREST [None]
